FAERS Safety Report 10019444 (Version 4)
Quarter: 2015Q4

REPORT INFORMATION
  Report Type: Report from Study
  Country: GB (occurrence: GB)
  Receive Date: 20140318
  Receipt Date: 20151207
  Transmission Date: 20160304
  Serious: Yes (Hospitalization, Other)
  Sender: FDA-Public Use
  Company Number: GB-BRISTOL-MYERS SQUIBB COMPANY-20416640

PATIENT
  Age: 65 Year
  Sex: Female

DRUGS (1)
  1. ABATACEPT [Suspect]
     Active Substance: ABATACEPT
     Indication: RHEUMATOID ARTHRITIS
     Dosage: 125 MG, QWK
     Route: 058
     Dates: start: 20130903

REACTIONS (5)
  - Uterine disorder [Unknown]
  - Pneumonia [Unknown]
  - Fall [Unknown]
  - Malaise [Unknown]
  - Bladder disorder [Unknown]

NARRATIVE: CASE EVENT DATE: 20151109
